FAERS Safety Report 26134202 (Version 1)
Quarter: 2025Q4

REPORT INFORMATION
  Report Type: Spontaneous
  Country: PH (occurrence: PH)
  Receive Date: 20251209
  Receipt Date: 20251209
  Transmission Date: 20260118
  Serious: Yes (Other)
  Sender: MACLEODS
  Company Number: PH-MLMSERVICE-20251121-PI721790-00105-1

PATIENT

DRUGS (2)
  1. CLOBETASOL PROPIONATE [Suspect]
     Active Substance: CLOBETASOL PROPIONATE
     Indication: Dermatitis atopic
     Dosage: USED REGULARLY FOR SEVEN MONTHS
     Route: 061
  2. BETAMETHASONE [Suspect]
     Active Substance: BETAMETHASONE
     Indication: Dermatitis atopic
     Route: 061

REACTIONS (2)
  - Pseudo Cushing^s syndrome [Recovering/Resolving]
  - Secondary adrenocortical insufficiency [Recovered/Resolved]
